FAERS Safety Report 5758465-9 (Version None)
Quarter: 2008Q2

REPORT INFORMATION
  Report Type: 
  Country: None (occurrence: None)
  Receive Date: 20080604
  Receipt Date: 20080523
  Transmission Date: 20081010
  Serious: Yes (Other)
  Sender: FDA-Public Use
  Company Number: DE-AVENTIS-200811385DE

PATIENT
  Age: 62 Year
  Sex: Male
  Weight: 67 kg

DRUGS (1)
  1. RILUTEK [Suspect]
     Indication: AMYOTROPHIC LATERAL SCLEROSIS
     Dosage: DOSE: NOT REPORTED
     Route: 048
     Dates: start: 20061201, end: 20070301

REACTIONS (4)
  - CEREBRAL HAEMORRHAGE [None]
  - COAGULOPATHY [None]
  - GINGIVAL BLEEDING [None]
  - THROMBOCYTOPENIA [None]
